FAERS Safety Report 12510156 (Version 1)
Quarter: 2016Q2

REPORT INFORMATION
  Report Type: Spontaneous
  Country: DE (occurrence: DE)
  Receive Date: 20160629
  Receipt Date: 20160629
  Transmission Date: 20160815
  Serious: Yes (Hospitalization)
  Sender: FDA-Public Use
  Company Number: DE-TEVA-671479GER

PATIENT
  Age: 80 Year
  Sex: Female

DRUGS (1)
  1. DULOXETINE. [Suspect]
     Active Substance: DULOXETINE
     Dosage: 6-9 G; DELAYED RELEASE
     Route: 048

REACTIONS (9)
  - Abdominal pain upper [Recovered/Resolved]
  - Visual acuity reduced [Recovered/Resolved]
  - Tremor [Recovered/Resolved]
  - Disorientation [Unknown]
  - Vomiting [Recovered/Resolved]
  - Toxicity to various agents [Recovered/Resolved]
  - Dizziness [Recovered/Resolved]
  - Dyspepsia [Recovered/Resolved]
  - Intentional overdose [Recovered/Resolved]
